FAERS Safety Report 7335681-6 (Version None)
Quarter: 2011Q1

REPORT INFORMATION
  Report Type: 
  Country: None (occurrence: None)
  Receive Date: 20110307
  Receipt Date: 20110303
  Transmission Date: 20110831
  Serious: Yes (Hospitalization)
  Sender: FDA-Public Use
  Company Number: A0901701A

PATIENT
  Age: 82 Year
  Sex: Female

DRUGS (7)
  1. FLONASE [Suspect]
     Route: 045
  2. PROTONIX [Concomitant]
  3. HYDROCORTISONE [Concomitant]
  4. UNSPECIFIED MEDICATION [Concomitant]
  5. SEREVENT [Concomitant]
     Route: 055
  6. FLOVENT [Suspect]
     Indication: ASTHMA
     Dosage: 2PUFF TWICE PER DAY
     Route: 055
     Dates: start: 20040101
  7. RHINOCORT [Concomitant]

REACTIONS (8)
  - PRODUCT QUALITY ISSUE [None]
  - THERAPEUTIC RESPONSE DECREASED [None]
  - ADVERSE EVENT [None]
  - RESPIRATORY THERAPY [None]
  - ILL-DEFINED DISORDER [None]
  - ASTHMA [None]
  - ATRIAL FIBRILLATION [None]
  - DRUG ADMINISTRATION ERROR [None]
